FAERS Safety Report 19751295 (Version 2)
Quarter: 2021Q4

REPORT INFORMATION
  Report Type: Report from Study
  Country: DE (occurrence: DE)
  Receive Date: 20210826
  Receipt Date: 20211029
  Transmission Date: 20220303
  Serious: Yes (Hospitalization, Other)
  Sender: FDA-Public Use
  Company Number: DE-AMGEN-DEUCT2021127322

PATIENT
  Age: 59 Year
  Sex: Female
  Weight: 68 kg

DRUGS (8)
  1. CARFILZOMIB [Suspect]
     Active Substance: CARFILZOMIB
     Indication: Plasma cell myeloma
     Dosage: 20 MILLIGRAM/SQ. METER, PER CHEMO REGIM
     Route: 042
     Dates: start: 20210218
  2. CARFILZOMIB [Suspect]
     Active Substance: CARFILZOMIB
     Dosage: 35 MILLIGRAM/SQ. METER, PER CHEMO REGIM
     Route: 042
  3. ELOTUZUMAB [Suspect]
     Active Substance: ELOTUZUMAB
     Indication: Plasma cell myeloma
     Dosage: 630 MILLIGRAM, PER CHEMO REGIM
     Route: 042
     Dates: start: 20210218
  4. LENALIDOMIDE [Suspect]
     Active Substance: LENALIDOMIDE
     Indication: Plasma cell myeloma
     Dosage: 25 MILLIGRAM, PER CHEMO REGIM
     Route: 048
     Dates: start: 20210218
  5. DEXAMETHASONE [Suspect]
     Active Substance: DEXAMETHASONE
     Indication: Plasma cell myeloma
     Dosage: 28 MILLIGRAM, PER CHEMO REGIM
     Route: 048
     Dates: start: 20210218
  6. DEXAMETHASONE [Suspect]
     Active Substance: DEXAMETHASONE
     Dosage: 8 MILLIGRAM, PER CHEMO REGIM
     Route: 042
  7. ELIQUIS [Concomitant]
     Active Substance: APIXABAN
     Indication: Prophylaxis
     Dosage: 5 MILLIGRAM, BID
     Route: 048
     Dates: start: 20210315
  8. CYCLOPHOSPHAMIDE [Concomitant]
     Active Substance: CYCLOPHOSPHAMIDE
     Indication: Haematopoietic stem cell mobilisation
     Dosage: 4300 MILLIGRAM, QD
     Route: 042
     Dates: start: 20210610, end: 20210611

REACTIONS (1)
  - Atrial flutter [Recovered/Resolved]

NARRATIVE: CASE EVENT DATE: 20210816
